FAERS Safety Report 10510001 (Version 1)
Quarter: 2014Q4

REPORT INFORMATION
  Report Type: Spontaneous
  Country: US (occurrence: None)
  Receive Date: 20141009
  Receipt Date: 20141009
  Transmission Date: 20150528
  Serious: Yes (Hospitalization)
  Sender: FDA-Public Use
  Company Number: None

PATIENT
  Age: 3 Year
  Sex: Female
  Weight: 19.2 kg

DRUGS (2)
  1. THIOTEPA. [Suspect]
     Active Substance: THIOTEPA
     Dates: end: 20140916
  2. CARBOPLATIN. [Suspect]
     Active Substance: CARBOPLATIN
     Dates: end: 20140917

REACTIONS (7)
  - Proctalgia [None]
  - Pyrexia [None]
  - Rectal fissure [None]
  - Decreased appetite [None]
  - Asthenia [None]
  - Constipation [None]
  - Tachycardia [None]

NARRATIVE: CASE EVENT DATE: 20140926
